FAERS Safety Report 7659297-7 (Version None)
Quarter: 2011Q3

REPORT INFORMATION
  Report Type: 
  Country: None (occurrence: None)
  Receive Date: 20110805
  Receipt Date: 20110725
  Transmission Date: 20111222
  Serious: Yes (Other)
  Sender: FDA-Public Use
  Company Number: US-ROCHE-792425

PATIENT
  Sex: Female

DRUGS (3)
  1. DOXORUBICIN HYDROCHLORIDE [Suspect]
     Route: 065
  2. BEVACIZUMAB [Suspect]
     Route: 065
  3. TEMSIROLIMUS [Suspect]
     Route: 065

REACTIONS (5)
  - HYPERKALAEMIA [None]
  - HYPONATRAEMIA [None]
  - PALMAR-PLANTAR ERYTHRODYSAESTHESIA SYNDROME [None]
  - HYPOKALAEMIA [None]
  - STOMATITIS [None]
